FAERS Safety Report 16928044 (Version 2)
Quarter: 2019Q4

REPORT INFORMATION
  Report Type: Spontaneous
  Country: US (occurrence: US)
  Receive Date: 20191017
  Receipt Date: 20191017
  Transmission Date: 20200122
  Serious: Yes (Other)
  Sender: FDA-Public Use
  Company Number: US-CIPLA LTD.-2019US06801

PATIENT

DRUGS (1)
  1. TOPIRAMATE. [Suspect]
     Active Substance: TOPIRAMATE
     Indication: MIGRAINE
     Dosage: UNK, 25 MG TABLET OF TOPIRAMATE, TOTAL OF 75 MG
     Route: 065
     Dates: start: 2019

REACTIONS (1)
  - Coeliac disease [Unknown]

NARRATIVE: CASE EVENT DATE: 2019
